FAERS Safety Report 23827349 (Version 2)
Quarter: 2024Q4

REPORT INFORMATION
  Report Type: Spontaneous
  Country: CA (occurrence: CA)
  Receive Date: 20240507
  Receipt Date: 20241004
  Transmission Date: 20250114
  Serious: Yes (Death, Life-Threatening, Hospitalization, Other)
  Sender: BAXTER
  Company Number: CA-BAXTER-2024BAX017746

PATIENT
  Age: 15 Year
  Sex: Female

DRUGS (3)
  1. ACETAMINOPHEN [Suspect]
     Active Substance: ACETAMINOPHEN
     Indication: Substance use
     Dosage: AT AN UNSPECIFIED DOSE AND FREQUENCY, (DOSAGE FORM: NOT SPECIFIED)
     Route: 065
  2. ACETAMINOPHEN [Suspect]
     Active Substance: ACETAMINOPHEN
     Indication: Product used for unknown indication
     Dosage: 15.0 GRAM AT AN UNSPECIFIED FREQUENCY, (DOSAGE FORM: NOT SPECIFIED)
     Route: 048
  3. ACETAMINOPHEN [Suspect]
     Active Substance: ACETAMINOPHEN
     Dosage: UNK
     Route: 048

REACTIONS (19)
  - Acute hepatic failure [Fatal]
  - Brain death [Fatal]
  - Overdose [Fatal]
  - Toxicity to various agents [Fatal]
  - Abdominal discomfort [Fatal]
  - Blood creatine increased [Fatal]
  - Fluid replacement [Fatal]
  - Hepatotoxicity [Fatal]
  - Agitation [Fatal]
  - Oliguria [Fatal]
  - Headache [Fatal]
  - Nausea [Fatal]
  - Blood creatinine increased [Fatal]
  - Brain herniation [Fatal]
  - Brain oedema [Fatal]
  - Hypothermia [Fatal]
  - Intentional overdose [Fatal]
  - Uraemic encephalopathy [Fatal]
  - International normalised ratio increased [Recovering/Resolving]
